FAERS Safety Report 12390265 (Version 1)
Quarter: 2016Q2

REPORT INFORMATION
  Report Type: Spontaneous
  Country: US (occurrence: US)
  Receive Date: 20160520
  Receipt Date: 20160520
  Transmission Date: 20160815
  Serious: Yes (Other)
  Sender: FDA-Public Use
  Company Number: US-MDT-ADR-2015-02281

PATIENT
  Age: 56 Year
  Sex: Female

DRUGS (27)
  1. PROVENTIL [Suspect]
     Active Substance: ALBUTEROL
     Route: 065
  2. BACLOFEN. [Suspect]
     Active Substance: BACLOFEN
     Dosage: 12.4 MCG/DAY
     Route: 037
     Dates: start: 20151124
  3. PERIACTIN [Suspect]
     Active Substance: CYPROHEPTADINE HYDROCHLORIDE
     Route: 065
  4. LIORESAL [Suspect]
     Active Substance: BACLOFEN
     Dosage: 921.9 MCG/DAY
     Route: 037
     Dates: start: 20150422, end: 20150722
  5. SYNTHROID [Suspect]
     Active Substance: LEVOTHYROXINE SODIUM
     Route: 065
  6. ATIVAN [Suspect]
     Active Substance: LORAZEPAM
     Route: 065
  7. ZANAFLEX [Suspect]
     Active Substance: TIZANIDINE HYDROCHLORIDE
     Route: 065
  8. DULERA [Suspect]
     Active Substance: FORMOTEROL FUMARATE DIHYDRATE\MOMETASONE FUROATE
     Route: 065
  9. COLACE [Suspect]
     Active Substance: DOCUSATE SODIUM
     Route: 065
  10. BENADRYL [Suspect]
     Active Substance: DIPHENHYDRAMINE HYDROCHLORIDE
     Route: 065
  11. VITAMIN C [Suspect]
     Active Substance: ASCORBIC ACID
     Route: 065
  12. CRANBERRY. [Suspect]
     Active Substance: CRANBERRY
     Route: 065
  13. TRAZODONE [Suspect]
     Active Substance: TRAZODONE HYDROCHLORIDE
     Route: 065
  14. DULCOLAX NOS [Suspect]
     Active Substance: BISACODYL OR DOCUSATE SODIUM
     Route: 065
  15. COMPAZINE [Suspect]
     Active Substance: PROCHLORPERAZINE MALEATE
     Route: 065
  16. SENNA [Suspect]
     Active Substance: SENNA LEAF\SENNOSIDES\SENNOSIDES A AND B
     Route: 065
  17. PROVENTIL [Suspect]
     Active Substance: ALBUTEROL
     Route: 065
  18. NEURONTIN [Suspect]
     Active Substance: GABAPENTIN
     Route: 065
  19. MS CONTIN [Suspect]
     Active Substance: MORPHINE SULFATE
     Route: 065
  20. DEPAKOTE [Suspect]
     Active Substance: DIVALPROEX SODIUM
     Route: 065
  21. PROZAC [Suspect]
     Active Substance: FLUOXETINE HYDROCHLORIDE
     Route: 065
  22. MAGNESIUM [Suspect]
     Active Substance: MAGNESIUM
     Route: 065
  23. EFFEXOR [Suspect]
     Active Substance: VENLAFAXINE HYDROCHLORIDE
     Route: 065
  24. POTASSIUM [Suspect]
     Active Substance: POTASSIUM
     Route: 065
  25. CALCIUM [Suspect]
     Active Substance: CALCIUM
     Route: 065
  26. COZAAR [Suspect]
     Active Substance: LOSARTAN POTASSIUM
     Route: 065
  27. LOPRESSOR [Suspect]
     Active Substance: METOPROLOL TARTRATE
     Route: 065

REACTIONS (5)
  - Drug withdrawal syndrome [Unknown]
  - Irritability [Unknown]
  - Pruritus [Unknown]
  - Muscle spasticity [Unknown]
  - Urinary tract infection [Unknown]

NARRATIVE: CASE EVENT DATE: 20151110
